FAERS Safety Report 16481806 (Version 1)
Quarter: 2019Q2

REPORT INFORMATION
  Report Type: Spontaneous
  Country: CN (occurrence: CN)
  Receive Date: 20190627
  Receipt Date: 20190627
  Transmission Date: 20190711
  Serious: Yes (Other)
  Sender: FDA-Public Use
  Company Number: CN-BRISTOL-MYERS SQUIBB COMPANY-BMS-2019-060473

PATIENT
  Age: 47 Year
  Sex: Male

DRUGS (1)
  1. OPDIVO [Suspect]
     Active Substance: NIVOLUMAB
     Indication: NEUROENDOCRINE CARCINOMA
     Dosage: 200 MILLIGRAM, Q2WK
     Route: 042

REACTIONS (4)
  - Myocardial necrosis marker increased [Unknown]
  - Pain in extremity [Unknown]
  - Asthenia [Unknown]
  - Back pain [Unknown]
